FAERS Safety Report 4670054-6 (Version None)
Quarter: 2005Q2

REPORT INFORMATION
  Report Type: 
  Country: None (occurrence: None)
  Receive Date: 20050523
  Receipt Date: 20050510
  Transmission Date: 20051028
  Serious: Yes (Hospitalization)
  Sender: FDA-Public Use
  Company Number: 26469

PATIENT
  Age: 67 Year
  Sex: Male

DRUGS (11)
  1. FLECAINIDE ACETATE (ORAL) (FLECAINIDE ACETATE) (150 MG, TABLETS) [Suspect]
     Indication: ATRIAL FIBRILLATION
     Dosage: 150 MG, 2 IN 1 DAY(S), ORAL
     Route: 048
     Dates: start: 20040401
  2. DILTIAZEM [Suspect]
  3. ASPIRIN [Suspect]
  4. LISINOPRIL [Concomitant]
  5. HYDROCHLOROTHIAZIDE [Concomitant]
  6. LEVOTHYROXINE SODIUM [Concomitant]
  7. ALPRAZOLAM [Concomitant]
  8. CYANOCOBALAMIN [Concomitant]
  9. PYRIDOXINE HCL [Concomitant]
  10. FOLIC ACID [Concomitant]
  11. UNSPECIFIED OINTMENTS [Concomitant]

REACTIONS (7)
  - BLOOD IRON DECREASED [None]
  - BRONCHOPNEUMONIA [None]
  - CHEST PAIN [None]
  - DYSPNOEA [None]
  - HAEMATOCRIT DECREASED [None]
  - HAEMOGLOBIN DECREASED [None]
  - VENTRICULAR EXTRASYSTOLES [None]
